FAERS Safety Report 12265873 (Version 1)
Quarter: 2016Q2

REPORT INFORMATION
  Report Type: Spontaneous
  Country: CH (occurrence: CH)
  Receive Date: 20160413
  Receipt Date: 20160413
  Transmission Date: 20160815
  Serious: Yes (Hospitalization)
  Sender: FDA-Public Use
  Company Number: CH-ASTRAZENECA-2016SE36730

PATIENT
  Age: 25120 Day
  Sex: Female

DRUGS (33)
  1. DAUNORUBICIN [Concomitant]
     Active Substance: DAUNORUBICIN
     Dates: start: 20160123, end: 20160207
  2. RIVOTRIL [Concomitant]
     Active Substance: CLONAZEPAM
     Dates: start: 20160222, end: 20160304
  3. INSULINE ACTRAPID [Concomitant]
     Dates: start: 201602, end: 201603
  4. CYCLOPHOSPHAMIDE. [Concomitant]
     Active Substance: CYCLOPHOSPHAMIDE
     Dates: start: 20160123, end: 20160206
  5. BACTRIM [Concomitant]
     Active Substance: SULFAMETHOXAZOLE\TRIMETHOPRIM
     Route: 048
     Dates: start: 20160119, end: 20160220
  6. RANITIDINE. [Concomitant]
     Active Substance: RANITIDINE
     Dates: start: 20160215, end: 20160307
  7. MERONEM [Suspect]
     Active Substance: MEROPENEM
     Route: 040
     Dates: start: 20160214, end: 20160220
  8. HYDROCORTISONE. [Concomitant]
     Active Substance: HYDROCORTISONE
     Route: 037
     Dates: start: 20160129, end: 20160201
  9. METOCLOPRAMIDE. [Concomitant]
     Active Substance: METOCLOPRAMIDE
     Dates: start: 201601
  10. FLUCONAZOLE. [Concomitant]
     Active Substance: FLUCONAZOLE
     Route: 048
     Dates: start: 20160119, end: 20160216
  11. KONAKION [Concomitant]
     Active Substance: PHYTONADIONE
     Dates: start: 2016
  12. FENTANYL. [Concomitant]
     Active Substance: FENTANYL
     Dates: start: 201602, end: 201603
  13. ACICLOVIR [Concomitant]
     Active Substance: ACYCLOVIR
     Route: 040
     Dates: start: 20160119, end: 20160222
  14. KEPPRA [Concomitant]
     Active Substance: LEVETIRACETAM
     Dates: start: 20160215
  15. MERONEM [Interacting]
     Active Substance: MEROPENEM
     Route: 040
  16. ONDANSETRON [Concomitant]
     Active Substance: ONDANSETRON
     Dates: start: 201601
  17. MIDAZOLAM [Concomitant]
     Active Substance: MIDAZOLAM\MIDAZOLAM HYDROCHLORIDE
     Dates: start: 201602, end: 201603
  18. CYTARABINE. [Suspect]
     Active Substance: CYTARABINE
     Route: 037
     Dates: start: 20160129, end: 20160201
  19. VINCRISTINE [Concomitant]
     Active Substance: VINCRISTINE
     Dates: start: 20160123, end: 20160206
  20. VORICONAZOLE. [Concomitant]
     Active Substance: VORICONAZOLE
     Dates: start: 20160215, end: 20160217
  21. AMIKACIN [Concomitant]
     Active Substance: AMIKACIN
     Dates: start: 20160219, end: 20160219
  22. PROPOFOL. [Concomitant]
     Active Substance: PROPOFOL
     Dates: start: 201602
  23. METHOTREXATE [Suspect]
     Active Substance: METHOTREXATE
     Route: 037
     Dates: start: 20160121, end: 20160201
  24. PIPERACILLIN AND TAZOBACTAM [Interacting]
     Active Substance: PIPERACILLIN SODIUM\TAZOBACTAM SODIUM
     Route: 040
     Dates: start: 20160204, end: 20160304
  25. ASPARAGINASE [Suspect]
     Active Substance: ASPARAGINASE
     Route: 040
     Dates: start: 20160123, end: 20160211
  26. RITUXIMAB [Concomitant]
     Active Substance: RITUXIMAB
     Route: 040
     Dates: start: 20160123, end: 20160204
  27. ALLOPURINOL. [Concomitant]
     Active Substance: ALLOPURINOL
     Dates: start: 20160119
  28. VIMPAT [Concomitant]
     Active Substance: LACOSAMIDE
     Dates: start: 20160222
  29. NOREPINEPHRINE [Concomitant]
     Active Substance: NOREPINEPHRINE\NOREPINEPHRINE BITARTRATE
     Dates: start: 201602, end: 201602
  30. NICARDIPINE [Concomitant]
     Active Substance: NICARDIPINE
     Dates: start: 201602, end: 201603
  31. PREDNISONE. [Concomitant]
     Active Substance: PREDNISONE
     Route: 048
     Dates: start: 20160119, end: 20160129
  32. GRANOCYTE [Concomitant]
     Active Substance: LENOGRASTIM
     Route: 058
     Dates: start: 201601, end: 20160304
  33. AMBISOME [Concomitant]
     Active Substance: AMPHOTERICIN B
     Route: 040
     Dates: start: 20160217, end: 20160309

REACTIONS (10)
  - Encephalitis [Not Recovered/Not Resolved]
  - Epilepsy [Recovering/Resolving]
  - Encephalopathy [Not Recovered/Not Resolved]
  - Cellulitis [Unknown]
  - Status epilepticus [Recovering/Resolving]
  - Hyperammonaemia [Recovered/Resolved]
  - Drug interaction [Unknown]
  - Altered state of consciousness [Not Recovered/Not Resolved]
  - Sepsis [Unknown]
  - Bronchopulmonary aspergillosis [Unknown]

NARRATIVE: CASE EVENT DATE: 20160212
